FAERS Safety Report 4636807-5 (Version None)
Quarter: 2005Q2

REPORT INFORMATION
  Report Type: 
  Country: None (occurrence: None)
  Receive Date: 20050414
  Receipt Date: 20050329
  Transmission Date: 20051028
  Serious: Yes (Other)
  Sender: FDA-Public Use
  Company Number: ACO_0138_2005

PATIENT
  Age: 47 Year
  Sex: Female

DRUGS (9)
  1. ZANAFLEX [Suspect]
     Indication: ANKYLOSING SPONDYLITIS
     Dosage: 4 MG PO
     Route: 048
     Dates: start: 20041203, end: 20050318
  2. LAMISIL [Suspect]
  3. METHADONE HCL [Suspect]
     Dosage: 25 MG PO
     Route: 048
     Dates: start: 20041001
  4. SERENASE [Suspect]
     Dosage: 2.5 MG PO
     Route: 048
  5. TEMGESIC    SCHERING-PLOUGH [Suspect]
     Dosage: 0.2 MG PO
     Route: 048
  6. RANITIDINE [Suspect]
     Dosage: 300 MG PO
     Route: 048
  7. AMOXICILLIN [Suspect]
     Dosage: 500 MG PO
     Route: 048
  8. BRUFEN  ABBOTT [Suspect]
     Dosage: 400 MG PO
     Route: 048
  9. CIPROFLOXACIN [Suspect]
     Dosage: 500 MG PO
     Route: 048

REACTIONS (1)
  - DRUG ABUSER [None]
